FAERS Safety Report 24178387 (Version 1)
Quarter: 2024Q3

REPORT INFORMATION
  Report Type: Spontaneous
  Country: IS (occurrence: IS)
  Receive Date: 20240806
  Receipt Date: 20240806
  Transmission Date: 20241017
  Serious: Yes (Hospitalization)
  Sender: GILEAD
  Company Number: None

PATIENT
  Age: 71 Year
  Sex: Female

DRUGS (4)
  1. TRODELVY [Suspect]
     Active Substance: SACITUZUMAB GOVITECAN-HZIY
     Indication: Product used for unknown indication
     Dosage: 500 MILLIGRAMS ON DAY 1 AND DAY 28, EVERY 21 DAYS
     Route: 065
     Dates: start: 20240702
  2. DOXAZOSIN MESYLATE [Concomitant]
     Active Substance: DOXAZOSIN MESYLATE
     Indication: Hypertension
     Dosage: 1 TABLET PER DAY
     Route: 065
  3. LERKANIDIPIN ACTAVIS [Concomitant]
     Indication: Hypertension
     Dosage: 1 TABLET PER DAY
     Route: 065
  4. VALSARTAN KRKA [Concomitant]
     Indication: Hypertension
     Dosage: 1 TABLET IN THE MORNING AND 1 TABLET IN THE EVENING
     Route: 065

REACTIONS (2)
  - Hypotension [Recovering/Resolving]
  - Diarrhoea [Recovering/Resolving]

NARRATIVE: CASE EVENT DATE: 20240717
